FAERS Safety Report 25025889 (Version 1)
Quarter: 2025Q1

REPORT INFORMATION
  Report Type: Spontaneous
  Country: US (occurrence: US)
  Receive Date: 20250301
  Receipt Date: 20250301
  Transmission Date: 20250409
  Serious: No
  Sender: NOVO NORDISK
  Company Number: US-NOVOPROD-1294176

PATIENT
  Age: 69 Year
  Sex: Female

DRUGS (1)
  1. VICTOZA [Suspect]
     Active Substance: LIRAGLUTIDE
     Indication: Type 2 diabetes mellitus
     Route: 058
     Dates: end: 202407

REACTIONS (6)
  - Visual impairment [Not Recovered/Not Resolved]
  - Colonoscopy [Recovered/Resolved]
  - Oral discomfort [Recovered/Resolved]
  - Chapped lips [Recovered/Resolved]
  - Oral discomfort [Recovered/Resolved]
  - Blood glucose increased [Recovered/Resolved]

NARRATIVE: CASE EVENT DATE: 20220101
